FAERS Safety Report 8987168 (Version 3)
Quarter: 2013Q2

REPORT INFORMATION
  Report Type: Spontaneous
  Country: US (occurrence: US)
  Receive Date: 20121227
  Receipt Date: 20130610
  Transmission Date: 20140414
  Serious: Yes (Hospitalization)
  Sender: FDA-Public Use
  Company Number: US-BAYER-2012-135215

PATIENT
  Age: 39 Year
  Sex: Female
  Weight: 95.24 kg

DRUGS (14)
  1. AZITHROMYCIN [Concomitant]
  2. FORADIL [Concomitant]
  3. FLOVENT [Concomitant]
  4. PREDNISONE [Concomitant]
  5. LASIX [Concomitant]
     Indication: OEDEMA PERIPHERAL
  6. IPRATROPIUM [Concomitant]
  7. PROAIR HFA [Concomitant]
  8. YAZ [Suspect]
     Indication: PREMENSTRUAL DYSPHORIC DISORDER
     Dosage: UNK
     Dates: start: 20080521, end: 20091121
  9. YAZ [Suspect]
     Indication: PREMENSTRUAL SYNDROME
     Dosage: UNK
     Dates: start: 2006, end: 2009
  10. YAZ [Suspect]
     Indication: PREMENSTRUAL DYSPHORIC DISORDER
     Dosage: UNK
     Dates: start: 200810, end: 2009
  11. ALBUTEROL [Concomitant]
     Dosage: UNK
     Dates: start: 20091120
  12. QVAR [Concomitant]
     Dosage: UNK
     Dates: start: 20091120
  13. SINGULAIR [Concomitant]
     Dosage: UNK
     Dates: start: 20091120
  14. SOLU-MEDROL [Concomitant]

REACTIONS (10)
  - Pulmonary embolism [Recovered/Resolved]
  - Deep vein thrombosis [None]
  - Pain [Recovered/Resolved]
  - Injury [Recovered/Resolved]
  - General physical health deterioration [Recovered/Resolved]
  - Anxiety [None]
  - Emotional distress [None]
  - Pain [None]
  - Cough [Recovered/Resolved]
  - Dyspnoea [Recovered/Resolved]
